FAERS Safety Report 6104225-9 (Version None)
Quarter: 2009Q1

REPORT INFORMATION
  Report Type: 
  Country: None (occurrence: None)
  Receive Date: 20090227
  Receipt Date: 20090212
  Transmission Date: 20090719
  Serious: Yes (Hospitalization)
  Sender: FDA-Public Use
  Company Number: 530#6#2007-00013

PATIENT
  Sex: Female
  Weight: 84 kg

DRUGS (14)
  1. ROTIGOTINE            (NEUPRO-PATCH-DOSE-UNKNOWN) [Suspect]
     Indication: PARKINSON'S DISEASE
     Dosage: 2 MG QD UNIT DOSE:  2 MG/24HOURS TRANSDERMAL, 4 MG QD, UNIT DOSE:  4MG/24 HOURS, TRANSDERMAL
     Route: 062
     Dates: start: 20061017, end: 20061023
  2. ROTIGOTINE            (NEUPRO-PATCH-DOSE-UNKNOWN) [Suspect]
     Indication: PARKINSON'S DISEASE
     Dosage: 2 MG QD UNIT DOSE:  2 MG/24HOURS TRANSDERMAL, 4 MG QD, UNIT DOSE:  4MG/24 HOURS, TRANSDERMAL
     Route: 062
     Dates: start: 20061024, end: 20070122
  3. LEVODOPA          (LEVODOPA 100 MG, TABLETS [Suspect]
     Indication: PARKINSON'S DISEASE
     Dosage: 100 MG TID ORAL
     Route: 048
     Dates: start: 20060915, end: 20061016
  4. STRIATRAN TAB [Suspect]
     Indication: PARKINSON'S DISEASE
     Dosage: SEE IMAGE
     Route: 048
     Dates: start: 20050718, end: 20050914
  5. STRIATRAN TAB [Suspect]
     Indication: PARKINSON'S DISEASE
     Dosage: SEE IMAGE
     Route: 048
     Dates: start: 20050915, end: 20061016
  6. STRIATRAN TAB [Suspect]
     Indication: PARKINSON'S DISEASE
     Dosage: SEE IMAGE
     Route: 048
     Dates: start: 20050317, end: 20070717
  7. LEVOTHYROXINE SODIUM [Concomitant]
  8. DICLOFENAC [Concomitant]
  9. SILICUR [Concomitant]
  10. EDRONAX [Concomitant]
  11. LORAZEPAM [Concomitant]
  12. CARBAMAZEPINE [Concomitant]
  13. LYRICA [Concomitant]
  14. REMERGIL [Concomitant]

REACTIONS (13)
  - DIARRHOEA [None]
  - DRUG HYPERSENSITIVITY [None]
  - DYSGEUSIA [None]
  - GAIT DISTURBANCE [None]
  - GENERAL PHYSICAL HEALTH DETERIORATION [None]
  - ILL-DEFINED DISORDER [None]
  - MUSCLE DISORDER [None]
  - MUSCLE SPASMS [None]
  - PAIN IN EXTREMITY [None]
  - PALPITATIONS [None]
  - PARAESTHESIA [None]
  - TACHYCARDIA [None]
  - UNEVALUABLE EVENT [None]
